FAERS Safety Report 4451166-9 (Version None)
Quarter: 2004Q3

REPORT INFORMATION
  Report Type: 
  Country: None (occurrence: None)
  Receive Date: 20040915
  Receipt Date: 20040915
  Transmission Date: 20050211
  Serious: Yes (Death)
  Sender: FDA-Public Use
  Company Number: None

PATIENT
  Age: 43 Year
  Sex: Female
  Weight: 62.5964 kg

DRUGS (3)
  1. VP-16 [Suspect]
     Indication: LYMPHOMA
     Dosage: 8280 MG X 1 IV
     Route: 042
     Dates: start: 20040402
  2. TBI [Concomitant]
  3. CYTOXAN [Concomitant]

REACTIONS (13)
  - BLOOD CREATININE INCREASED [None]
  - BRAIN HERNIATION [None]
  - DISSEMINATED INTRAVASCULAR COAGULATION [None]
  - HEPATIC FUNCTION ABNORMAL [None]
  - HYPERTENSION [None]
  - HYPOTENSION [None]
  - MUCOSAL INFLAMMATION [None]
  - MYDRIASIS [None]
  - PO2 DECREASED [None]
  - RASH ERYTHEMATOUS [None]
  - SEPTIC SHOCK [None]
  - TOXIC EPIDERMAL NECROLYSIS [None]
  - URINE OUTPUT DECREASED [None]
